FAERS Safety Report 14903910 (Version 1)
Quarter: 2018Q2

REPORT INFORMATION
  Report Type: Report from Study
  Country: US (occurrence: US)
  Receive Date: 20180516
  Receipt Date: 20180516
  Transmission Date: 20180711
  Serious: Yes (Hospitalization, Other)
  Sender: FDA-Public Use
  Company Number: US-GILEAD-2018-0332050

PATIENT
  Age: 64 Year
  Sex: Male

DRUGS (21)
  1. LEUKERAN [Concomitant]
     Active Substance: CHLORAMBUCIL
     Dosage: UNKNOWN
  2. ONCOVIN [Concomitant]
     Active Substance: VINCRISTINE SULFATE
     Indication: CHRONIC LYMPHOCYTIC LEUKAEMIA
  3. FISH OIL [Concomitant]
     Active Substance: FISH OIL
     Dosage: UNKNOWN
  4. LEUKERAN [Concomitant]
     Active Substance: CHLORAMBUCIL
     Indication: CHRONIC LYMPHOCYTIC LEUKAEMIA
     Dosage: UNKNOWN
  5. DOXORUBICIN [Concomitant]
     Active Substance: DOXORUBICIN
     Indication: CHRONIC LYMPHOCYTIC LEUKAEMIA
  6. PREDNISOLONE. [Concomitant]
     Active Substance: PREDNISOLONE
  7. MULTIVITAMIN                       /00097801/ [Concomitant]
     Active Substance: VITAMINS
     Indication: SUPPLEMENTATION THERAPY
     Dosage: UNKNOWN
  8. IMBRUVICA [Concomitant]
     Active Substance: IBRUTINIB
     Indication: CHRONIC LYMPHOCYTIC LEUKAEMIA
     Dosage: 140MG/TABLET, 3 TABLETS ONCE A DAY
     Dates: start: 2014, end: 201803
  9. RITUXIMAB. [Concomitant]
     Active Substance: RITUXIMAB
     Dosage: UNKNOWN
  10. IDELALISIB [Suspect]
     Active Substance: IDELALISIB
     Indication: CHRONIC LYMPHOCYTIC LEUKAEMIA
     Dosage: 150 MG, BID
     Route: 048
     Dates: start: 20180327, end: 20180426
  11. COLLAGEN [Concomitant]
     Active Substance: COLLAGEN
     Dosage: UNKNOWN
  12. VITAMIN C [Concomitant]
     Active Substance: ASCORBIC ACID
     Indication: SUPPLEMENTATION THERAPY
     Dosage: UNKNOWN
  13. OTHER MINERAL PRODUCTS [Concomitant]
     Indication: SUPPLEMENTATION THERAPY
     Dosage: UNKNOWN
  14. PREDNISONE. [Concomitant]
     Active Substance: PREDNISONE
     Dosage: UNKNOWN
     Dates: start: 201805
  15. CYCLOPHOSPHAMIDE. [Concomitant]
     Active Substance: CYCLOPHOSPHAMIDE
     Indication: CHRONIC LYMPHOCYTIC LEUKAEMIA
  16. PROMACTA [Concomitant]
     Active Substance: ELTROMBOPAG OLAMINE
     Dosage: UNKNOWN
  17. RITUXIMAB. [Concomitant]
     Active Substance: RITUXIMAB
     Indication: CHRONIC LYMPHOCYTIC LEUKAEMIA
     Dosage: UNKNOWN
  18. COLLAGEN [Concomitant]
     Active Substance: COLLAGEN
     Indication: SUPPLEMENTATION THERAPY
     Dosage: UNKNOWN
  19. FISH OIL [Concomitant]
     Active Substance: FISH OIL
     Indication: SUPPLEMENTATION THERAPY
     Dosage: UNKNOWN
  20. ALKALINE [Concomitant]
     Indication: SUPPLEMENTATION THERAPY
     Dosage: UNKNOWN
  21. PROMACTA [Concomitant]
     Active Substance: ELTROMBOPAG OLAMINE
     Indication: IMMUNE THROMBOCYTOPENIC PURPURA
     Dosage: UNKNOWN

REACTIONS (5)
  - Drug ineffective [Unknown]
  - Fatigue [Recovering/Resolving]
  - Drug dose omission [Unknown]
  - White blood cell count increased [Not Recovered/Not Resolved]
  - Transfusion [Recovered/Resolved]

NARRATIVE: CASE EVENT DATE: 201803
